FAERS Safety Report 24396699 (Version 2)
Quarter: 2024Q4

REPORT INFORMATION
  Report Type: Spontaneous
  Country: US (occurrence: US)
  Receive Date: 20241004
  Receipt Date: 20241014
  Transmission Date: 20250114
  Serious: No
  Sender: DAIICHI
  Company Number: US-DAIICHI SANKYO, INC.-DS-2024-102296-USAA

PATIENT
  Sex: Male

DRUGS (2)
  1. TURALIO [Suspect]
     Active Substance: PEXIDARTINIB HYDROCHLORIDE
     Indication: Connective tissue neoplasm
     Dosage: 125 MG, BID (125MG TWICE DAILY)
     Route: 048
     Dates: start: 20240918
  2. TURALIO [Suspect]
     Active Substance: PEXIDARTINIB HYDROCHLORIDE
     Indication: Soft tissue neoplasm

REACTIONS (11)
  - Impaired driving ability [Unknown]
  - Photosensitivity reaction [Unknown]
  - Weight decreased [Unknown]
  - Disorientation [Recovered/Resolved]
  - Feeling abnormal [Recovered/Resolved]
  - Loss of personal independence in daily activities [Recovered/Resolved]
  - Haemoglobin increased [Unknown]
  - Pruritus [Recovered/Resolved]
  - Fatigue [Unknown]
  - Dizziness [Recovering/Resolving]
  - Rash macular [Not Recovered/Not Resolved]
